FAERS Safety Report 22112558 (Version 1)
Quarter: 2023Q1

REPORT INFORMATION
  Report Type: Spontaneous
  Country: US (occurrence: None)
  Receive Date: 20230319
  Receipt Date: 20230319
  Transmission Date: 20230418
  Serious: No
  Sender: FDA-Public Use
  Company Number: 2023A021127

PATIENT
  Age: 9712 Day
  Sex: Female
  Weight: 57.6 kg

DRUGS (1)
  1. SYMBICORT [Suspect]
     Active Substance: BUDESONIDE\FORMOTEROL FUMARATE DIHYDRATE
     Indication: Asthma
     Dosage: 160/4.5 MCG, 2 INHALATIONS 2 TIMES A DAY
     Route: 055
     Dates: start: 202212

REACTIONS (2)
  - Nasopharyngitis [Recovered/Resolved]
  - Device physical property issue [Unknown]

NARRATIVE: CASE EVENT DATE: 20221230
